FAERS Safety Report 23304409 (Version 1)
Quarter: 2023Q4

REPORT INFORMATION
  Report Type: Spontaneous
  Country: CH (occurrence: CH)
  Receive Date: 20231218
  Receipt Date: 20231218
  Transmission Date: 20240109
  Serious: Yes (Death, Life-Threatening, Hospitalization, Other)
  Sender: FDA-Public Use
  Company Number: CH-MACLEODS PHARMACEUTICALS US LTD-MAC2023044775

PATIENT

DRUGS (13)
  1. LAMIVUDINE [Suspect]
     Active Substance: LAMIVUDINE
     Indication: Antiretroviral therapy
     Dosage: UNK
     Route: 065
     Dates: start: 200602
  2. NEVIRAPINE [Suspect]
     Active Substance: NEVIRAPINE
     Indication: Antiretroviral therapy
     Dosage: UNK
     Route: 065
     Dates: start: 200602
  3. TENOFOVIR [Suspect]
     Active Substance: TENOFOVIR
     Indication: Antiretroviral therapy
     Dosage: 245 MILLIGRAM, QD
     Route: 065
     Dates: start: 200407
  4. TENOFOVIR [Suspect]
     Active Substance: TENOFOVIR
     Dosage: UNK
     Route: 065
     Dates: start: 200602
  5. LOPINAVIR\RITONAVIR [Interacting]
     Active Substance: LOPINAVIR\RITONAVIR
     Indication: Antiretroviral therapy
     Dosage: 1 DOSAGE FORM, BID, 400 MG/100 MG
     Route: 065
     Dates: start: 200407
  6. METHADONE [Interacting]
     Active Substance: METHADONE HYDROCHLORIDE
     Indication: Drug dependence
     Dosage: 75 MILLIGRAM, BID
     Route: 065
  7. METHYLPHENIDATE [Suspect]
     Active Substance: METHYLPHENIDATE
     Indication: Drug dependence
     Dosage: 20 MILLIGRAM, BID
     Route: 065
  8. PAROXETINE HYDROCHLORIDE [Suspect]
     Active Substance: PAROXETINE HYDROCHLORIDE\PAROXETINE HYDROCHLORIDE ANHYDROUS
     Indication: Anxiety disorder
     Dosage: 30 MILLIGRAM, QD
     Route: 065
  9. RITONAVIR\TIPRANAVIR [Suspect]
     Active Substance: RITONAVIR\TIPRANAVIR
     Indication: Antiretroviral therapy
     Dosage: UNK
     Route: 065
     Dates: start: 200602
  10. DIDANOSINE [Concomitant]
     Active Substance: DIDANOSINE
     Indication: Antiretroviral therapy
     Dosage: 250 MILLIGRAM, QD
     Route: 065
     Dates: start: 200407
  11. FOSAMPRENAVIR [Concomitant]
     Active Substance: FOSAMPRENAVIR
     Indication: Antiretroviral therapy
     Dosage: 700 MILLIGRAM, BID
     Route: 065
     Dates: start: 200407
  12. OXAZEPAM [Concomitant]
     Active Substance: OXAZEPAM
     Indication: Anxiety disorder
     Dosage: 50 MILLIGRAM, QD
     Route: 065
  13. MORPHINE [Concomitant]
     Active Substance: MORPHINE
     Indication: Drug dependence
     Dosage: UNK
     Route: 065

REACTIONS (8)
  - Hepatic failure [Fatal]
  - Torsade de pointes [Recovered/Resolved]
  - Hepatic cirrhosis [Unknown]
  - Ascites [Unknown]
  - Hypomagnesaemia [Unknown]
  - Hypokalaemia [Unknown]
  - Hyperlactacidaemia [Unknown]
  - Drug interaction [Unknown]
